FAERS Safety Report 5024282-0 (Version None)
Quarter: 2006Q2

REPORT INFORMATION
  Report Type: 
  Country: None (occurrence: None)
  Receive Date: 20060426
  Receipt Date: 20060327
  Transmission Date: 20061013
  Serious: Yes (Other)
  Sender: FDA-Public Use
  Company Number: 2006043240

PATIENT
  Age: 80 Year
  Sex: Male
  Weight: 78.0187 kg

DRUGS (4)
  1. LYRICA [Suspect]
     Indication: NEUROPATHY
     Dosage: 50 MG, 1 IN D
     Dates: start: 20060101, end: 20060101
  2. PROCARDIA [Concomitant]
  3. HYTRIN [Concomitant]
  4. SYNTHROID [Concomitant]

REACTIONS (5)
  - MOOD ALTERED [None]
  - PAIN [None]
  - POLLAKIURIA [None]
  - RASH [None]
  - SWELLING [None]
